FAERS Safety Report 16849944 (Version 1)
Quarter: 2019Q3

REPORT INFORMATION
  Report Type: Spontaneous
  Country: US (occurrence: US)
  Receive Date: 20190925
  Receipt Date: 20190925
  Transmission Date: 20191005
  Serious: Yes (Hospitalization)
  Sender: FDA-Public Use
  Company Number: US-BAYER-2019-174182

PATIENT
  Age: 72 Year
  Sex: Male

DRUGS (2)
  1. CLOPIDOGREL [Suspect]
     Active Substance: CLOPIDOGREL BISULFATE
  2. ACETYLSALICYLIC ACID (PAIN AND FEVER) [Suspect]
     Active Substance: ASPIRIN

REACTIONS (4)
  - Labelled drug-drug interaction medication error [None]
  - Anaemia [None]
  - Faeces discoloured [None]
  - Haematemesis [None]
